FAERS Safety Report 6569189-2 (Version None)
Quarter: 2010Q1

REPORT INFORMATION
  Report Type: 
  Country: None (occurrence: None)
  Receive Date: 20100203
  Receipt Date: 20100127
  Transmission Date: 20100710
  Serious: Yes (Hospitalization)
  Sender: FDA-Public Use
  Company Number: PL-ROCHE-682782

PATIENT
  Sex: Male
  Weight: 74 kg

DRUGS (2)
  1. BEVACIZUMAB [Suspect]
     Indication: RENAL CELL CARCINOMA
     Dosage: LAST DOSE PRIOR TO EVENT ON 29 DEC 2009
     Route: 042
     Dates: start: 20090728, end: 20091229
  2. PARACETAMOL [Suspect]
     Indication: PROPHYLAXIS
     Route: 065
     Dates: start: 20090728

REACTIONS (1)
  - SUBILEUS [None]
